FAERS Safety Report 20467933 (Version 1)
Quarter: 2022Q1

REPORT INFORMATION
  Report Type: Spontaneous
  Country: JP (occurrence: JP)
  Receive Date: 20220214
  Receipt Date: 20220214
  Transmission Date: 20220424
  Serious: Yes (Other)
  Sender: FDA-Public Use
  Company Number: JP-ASTELLAS-2022JP002455

PATIENT
  Sex: Female

DRUGS (2)
  1. MIRABEGRON [Suspect]
     Active Substance: MIRABEGRON
     Indication: Pollakiuria
     Dosage: 25 MG, ONCE DAILY, MORNING
     Route: 048
  2. METHYLCOBALAMIN [Suspect]
     Active Substance: METHYLCOBALAMIN
     Indication: Product used for unknown indication
     Route: 048

REACTIONS (11)
  - Renal impairment [Unknown]
  - Visual impairment [Unknown]
  - Vitreous floaters [Recovering/Resolving]
  - Haematuria [Unknown]
  - Urine abnormality [Unknown]
  - Head discomfort [Unknown]
  - Headache [Unknown]
  - Blood pressure diastolic increased [Unknown]
  - Malaise [Unknown]
  - Aspartate aminotransferase increased [Unknown]
  - Wrong technique in product usage process [Unknown]

NARRATIVE: CASE EVENT DATE: 20210101
